FAERS Safety Report 15880422 (Version 1)
Quarter: 2019Q1

REPORT INFORMATION
  Report Type: Spontaneous
  Country: US (occurrence: US)
  Receive Date: 20190128
  Receipt Date: 20190128
  Transmission Date: 20190417
  Serious: Yes (Other)
  Sender: FDA-Public Use
  Company Number: US-JNJFOC-20190124334

PATIENT
  Age: 23 Year
  Sex: Male
  Weight: 88.45 kg

DRUGS (2)
  1. STELARA [Suspect]
     Active Substance: USTEKINUMAB
     Indication: PSORIASIS
     Route: 058
     Dates: start: 201812
  2. STELARA [Suspect]
     Active Substance: USTEKINUMAB
     Indication: PSORIASIS
     Route: 058

REACTIONS (4)
  - Generalised tonic-clonic seizure [Unknown]
  - Headache [Unknown]
  - Feeling abnormal [Unknown]
  - Aura [Unknown]

NARRATIVE: CASE EVENT DATE: 20190110
